FAERS Safety Report 8846508 (Version 1)
Quarter: 2012Q4

REPORT INFORMATION
  Report Type: 
  Country: US (occurrence: US)
  Receive Date: 20121017
  Receipt Date: 20121017
  Transmission Date: 20130627
  Serious: No
  Sender: FDA-Public Use
  Company Number: US-GLAXOSMITHKLINE-A0974675A

PATIENT
  Age: 67 Year
  Sex: Female

DRUGS (6)
  1. CEFTIN [Suspect]
     Indication: PRODUCT USED FOR UNKNOWN INDICATION
     Route: 065
  2. ACCUPRIL [Concomitant]
  3. NORVASC [Concomitant]
  4. BENADRYL [Concomitant]
  5. AMLODIPINE [Concomitant]
  6. BACTRIM [Concomitant]

REACTIONS (3)
  - Nausea [Unknown]
  - Vomiting [Unknown]
  - Diarrhoea [Unknown]
